FAERS Safety Report 4998962-7 (Version None)
Quarter: 2006Q2

REPORT INFORMATION
  Report Type: 
  Country: None (occurrence: None)
  Receive Date: 20060510
  Receipt Date: 20051107
  Transmission Date: 20061013
  Serious: Yes (Hospitalization)
  Sender: FDA-Public Use
  Company Number: US-MERCK-0511USA01401

PATIENT
  Age: 60 Year
  Sex: Female
  Weight: 80 kg

DRUGS (10)
  1. ALLOPURINOL [Concomitant]
     Indication: GOUT
     Route: 065
  2. NORVASC [Concomitant]
     Indication: CARDIAC DISORDER
     Route: 065
     Dates: start: 20000101
  3. SENNA [Concomitant]
     Indication: CONSTIPATION
     Route: 065
  4. NITROQUICK [Concomitant]
     Indication: CHEST PAIN
     Route: 065
  5. VIOXX [Suspect]
     Indication: GOUT
     Route: 048
     Dates: start: 19990101, end: 20000101
  6. VIOXX [Suspect]
     Route: 048
     Dates: start: 20011201, end: 20020401
  7. HYDROCORTISONE [Concomitant]
     Indication: PAIN IN EXTREMITY
     Route: 065
  8. COLCHICINE [Concomitant]
     Indication: GOUT
     Route: 065
  9. ATENOLOL [Concomitant]
     Indication: HYPERTENSION
     Route: 065
  10. PLAVIX [Concomitant]
     Indication: ANTICOAGULANT THERAPY
     Route: 065
     Dates: start: 20000101, end: 20050101

REACTIONS (5)
  - BLOOD PRESSURE ABNORMAL [None]
  - CARDIAC DISORDER [None]
  - CHEST PAIN [None]
  - CORONARY ARTERY OCCLUSION [None]
  - DYSPNOEA [None]
